FAERS Safety Report 15293326 (Version 4)
Quarter: 2019Q2

REPORT INFORMATION
  Report Type: Spontaneous
  Country: GB (occurrence: GB)
  Receive Date: 20180820
  Receipt Date: 20190409
  Transmission Date: 20190711
  Serious: Yes (Life-Threatening, Hospitalization, Other)
  Sender: FDA-Public Use
  Company Number: GB-BRISTOL-MYERS SQUIBB COMPANY-BMS-2018-076555

PATIENT
  Age: 75 Year
  Sex: Male

DRUGS (4)
  1. METHYLPREDNISOLONE. [Suspect]
     Active Substance: METHYLPREDNISOLONE
     Indication: TEMPORAL ARTERITIS
     Dosage: UNK
     Route: 065
  2. METFORMIN HYDROCHLORIDE. [Suspect]
     Active Substance: METFORMIN HYDROCHLORIDE
     Indication: TYPE 2 DIABETES MELLITUS
     Dosage: UNK
     Route: 065
  3. PREDNISOLONE. [Suspect]
     Active Substance: PREDNISOLONE
     Indication: TEMPORAL ARTERITIS
     Dosage: 60 MG, QD
     Route: 048
  4. INSULIN [Concomitant]
     Active Substance: INSULIN NOS
     Indication: TYPE 2 DIABETES MELLITUS
     Dosage: UNK
     Route: 065

REACTIONS (12)
  - Diabetic ketoacidosis [Unknown]
  - Skin necrosis [Unknown]
  - Fungal infection [Unknown]
  - Mucormycosis [Unknown]
  - Eye pain [Unknown]
  - Conjunctival oedema [Unknown]
  - Ophthalmoplegia [Unknown]
  - Eye swelling [Unknown]
  - Headache [Unknown]
  - Acute kidney injury [Unknown]
  - Cavernous sinus thrombosis [Unknown]
  - Blindness unilateral [Unknown]
